FAERS Safety Report 4610693-1 (Version None)
Quarter: 2005Q2

REPORT INFORMATION
  Report Type: 
  Country: None (occurrence: None)
  Receive Date: 20050228
  Receipt Date: 20041111
  Transmission Date: 20051028
  Serious: No
  Sender: FDA-Public Use
  Company Number: 210346

PATIENT
  Age: 9 Year
  Sex: Female
  Weight: 43.4 kg

DRUGS (4)
  1. NUTROPIN [Suspect]
     Indication: HYPOPITUITARISM
     Dosage: 1MG, QD; SUBCUTANEOUS
     Route: 058
     Dates: start: 19950921, end: 20041027
  2. MELATONIN [Concomitant]
  3. CORTEF [Concomitant]
  4. LEVOXL (LEVOTHYROXINE SODIUM) [Concomitant]

REACTIONS (2)
  - INTRACRANIAL PRESSURE INCREASED [None]
  - PAPILLOEDEMA [None]
